FAERS Safety Report 10707748 (Version 1)
Quarter: 2015Q1

REPORT INFORMATION
  Report Type: Spontaneous
  Country: DE (occurrence: FR)
  Receive Date: 20150113
  Receipt Date: 20150113
  Transmission Date: 20150721
  Serious: Yes (Hospitalization)
  Sender: FDA-Public Use
  Company Number: FR-FRI-1000073561

PATIENT
  Age: 88 Year
  Sex: Female

DRUGS (4)
  1. ZAMUDOL [Suspect]
     Active Substance: TRAMADOL HYDROCHLORIDE
     Indication: PAIN
     Dosage: 2 DOSAGE FORMS
     Route: 048
     Dates: end: 20140905
  2. LYRICA [Suspect]
     Active Substance: PREGABALIN
     Indication: ANXIETY DISORDER
     Dosage: 1 DOSAGE FORM
     Route: 048
     Dates: end: 20140905
  3. MEMANTINE [Suspect]
     Active Substance: MEMANTINE
     Indication: DEMENTIA ALZHEIMER^S TYPE
     Dosage: 1 DOSAGE FORM
     Route: 048
     Dates: start: 20140730, end: 201408
  4. CELEBREX [Suspect]
     Active Substance: CELECOXIB
     Dosage: 1 DOSAGE FORM
     Route: 048
     Dates: end: 20140905

REACTIONS (2)
  - Aggression [Recovered/Resolved]
  - Negativism [Recovered/Resolved]

NARRATIVE: CASE EVENT DATE: 20140815
